FAERS Safety Report 9220339 (Version 4)
Quarter: 2019Q1

REPORT INFORMATION
  Report Type: Report from Study
  Country: NL (occurrence: NL)
  Receive Date: 20130409
  Receipt Date: 20190319
  Transmission Date: 20190418
  Serious: Yes (Hospitalization, Other)
  Sender: FDA-Public Use
  Company Number: NL-PFIZER INC-2013109232

PATIENT
  Age: 41 Year
  Sex: Male
  Weight: 109 kg

DRUGS (11)
  1. SEROQUEL [Suspect]
     Active Substance: QUETIAPINE FUMARATE
     Dosage: 25 MG, 1X/DAY
     Route: 048
     Dates: start: 20111124, end: 20111221
  2. DOMPERIDONE [Suspect]
     Active Substance: DOMPERIDONE
     Dosage: 10 MG, QD
     Route: 048
     Dates: start: 20091209, end: 20111221
  3. AMLODIPINE BESILATE [Suspect]
     Active Substance: AMLODIPINE BESYLATE
     Dosage: 10 MG, 1X/DAY
     Route: 048
     Dates: start: 20111124, end: 20111223
  4. PANTOPRAZOLE [Suspect]
     Active Substance: PANTOPRAZOLE
     Dosage: 40 MG, QD
     Route: 048
  5. COCAINE [Suspect]
     Active Substance: COCAINE
     Dosage: UNK
  6. PANADOL ATROSE [Concomitant]
     Dosage: 1000 MG, 1X/DAY
     Route: 048
     Dates: start: 20111124, end: 20111221
  7. METOPROLOL /00376903/ [Suspect]
     Active Substance: METOPROLOL SUCCINATE
     Dosage: 50 MG, 1X/DAY
     Route: 048
  8. BUSCOPAN [Suspect]
     Active Substance: BUTYLSCOPOLAMINE BROMIDE
     Dosage: 10 MG, QD
     Route: 048
     Dates: start: 20091209, end: 20111221
  9. NORTRILEN [Suspect]
     Active Substance: NORTRIPTYLINE
     Dosage: 50 MG, QD
     Route: 048
  10. NORTRILEN [Suspect]
     Active Substance: NORTRIPTYLINE
     Dosage: 100 MG, 1X/DAY, (2 TABLETS IN THE MORNING.)
     Route: 048
  11. OXAZEPAM. [Concomitant]
     Active Substance: OXAZEPAM
     Dosage: 5 MG, AS NEEDED (TWICE A DAY)

REACTIONS (13)
  - Haemorrhoids [Not Recovered/Not Resolved]
  - Abdominal discomfort [Not Recovered/Not Resolved]
  - Drug abuse [Unknown]
  - Haematochezia [Not Recovered/Not Resolved]
  - Overweight [Not Recovered/Not Resolved]
  - Constipation [Not Recovered/Not Resolved]
  - Depression [Unknown]
  - Dyspnoea [Not Recovered/Not Resolved]
  - Abnormal faeces [Not Recovered/Not Resolved]
  - Bowel movement irregularity [Not Recovered/Not Resolved]
  - Eating disorder [Not Recovered/Not Resolved]
  - Fatigue [Not Recovered/Not Resolved]
  - Alcohol use [Unknown]

NARRATIVE: CASE EVENT DATE: 20090815
